FAERS Safety Report 9714239 (Version 2)
Quarter: 2013Q4

REPORT INFORMATION
  Report Type: Spontaneous
  Country: US (occurrence: US)
  Receive Date: 20131126
  Receipt Date: 20131126
  Transmission Date: 20140711
  Serious: Yes (Hospitalization)
  Sender: FDA-Public Use
  Company Number: US-GILEAD-2008-0019084

PATIENT
  Age: 65 Year
  Sex: Male

DRUGS (8)
  1. LETAIRIS [Suspect]
     Indication: PULMONARY ARTERIAL HYPERTENSION
     Route: 048
     Dates: start: 20080503
  2. PREDNISONE [Concomitant]
  3. LIPITOR [Concomitant]
  4. ZETIA [Concomitant]
  5. PANTOPRAZOLE [Concomitant]
  6. FINASTERIDE [Concomitant]
  7. SUCRALFATE [Concomitant]
  8. ZOLPIDEM [Concomitant]

REACTIONS (2)
  - Dyspnoea [None]
  - Liver function test abnormal [Recovered/Resolved]
